FAERS Safety Report 17408367 (Version 4)
Quarter: 2020Q3

REPORT INFORMATION
  Report Type: Spontaneous
  Country: US (occurrence: US)
  Receive Date: 20200212
  Receipt Date: 20200821
  Transmission Date: 20201102
  Serious: Yes (Hospitalization, Other)
  Sender: FDA-Public Use
  Company Number: US-GILEAD-2020-0450628

PATIENT
  Age: 60 Year
  Sex: Male
  Weight: 90.7 kg

DRUGS (52)
  1. STRIBILD [Suspect]
     Active Substance: COBICISTAT\ELVITEGRAVIR\EMTRICITABINE\TENOFOVIR DISOPROXIL FUMARATE
     Indication: HIV INFECTION
     Dosage: UNK
     Route: 048
     Dates: start: 20160304, end: 20160403
  2. PRAVASTATIN. [Concomitant]
     Active Substance: PRAVASTATIN
  3. ACYCLOVIR ABBOTT VIAL [Concomitant]
  4. ZOLPIDEM [Concomitant]
     Active Substance: ZOLPIDEM TARTRATE
  5. SUBLIMAZE [Concomitant]
     Active Substance: FENTANYL CITRATE
  6. PERCOCET [OXYCODONE HYDROCHLORIDE;OXYCODONE TEREPHTHALATE;PARACETAMOL] [Concomitant]
     Active Substance: ACETAMINOPHEN\OXYCODONE HYDROCHLORIDE\OXYCODONE TEREPHTHALATE
  7. CHLORAPREP [Concomitant]
     Active Substance: CHLORHEXIDINE GLUCONATE\ISOPROPYL ALCOHOL
  8. VERSED [Concomitant]
     Active Substance: MIDAZOLAM HYDROCHLORIDE
  9. NORMAL SALINE [Concomitant]
     Active Substance: SODIUM CHLORIDE
  10. OXYCONTIN [Concomitant]
     Active Substance: OXYCODONE HYDROCHLORIDE
  11. VANCOMYCIN [Concomitant]
     Active Substance: VANCOMYCIN
  12. ATENOLOL. [Concomitant]
     Active Substance: ATENOLOL
  13. ABACAVIR. [Concomitant]
     Active Substance: ABACAVIR
  14. LACTATED RINGERS SOLUTION [Concomitant]
     Active Substance: CALCIUM CHLORIDE\POTASSIUM CHLORIDE\SODIUM CHLORIDE\SODIUM LACTATE
  15. PROPOFOL. [Concomitant]
     Active Substance: PROPOFOL
  16. MIDAZOLAM. [Concomitant]
     Active Substance: MIDAZOLAM
  17. SUSTIVA [Concomitant]
     Active Substance: EFAVIRENZ
  18. ZIAGEN [Concomitant]
     Active Substance: ABACAVIR SULFATE
  19. VIREAD [Suspect]
     Active Substance: TENOFOVIR DISOPROXIL FUMARATE
     Dosage: UNK
     Route: 048
  20. GENVOYA [Concomitant]
     Active Substance: COBICISTAT\ELVITEGRAVIR\EMTRICITABINE\TENOFOVIR ALAFENAMIDE FUMARATE
  21. VIRAMUNE [Concomitant]
     Active Substance: NEVIRAPINE
  22. TYLENOL [Concomitant]
     Active Substance: ACETAMINOPHEN
  23. ALCOHOL. [Concomitant]
     Active Substance: ALCOHOL
  24. ZOFRAN [Concomitant]
     Active Substance: ONDANSETRON HYDROCHLORIDE
  25. ATORVASTATIN [Concomitant]
     Active Substance: ATORVASTATIN
  26. CELEBREX [Concomitant]
     Active Substance: CELECOXIB
  27. ATIVAN [Concomitant]
     Active Substance: LORAZEPAM
  28. BACIBACT [Concomitant]
  29. LIDOCAINE. [Concomitant]
     Active Substance: LIDOCAINE
  30. CEFDINIR. [Concomitant]
     Active Substance: CEFDINIR
  31. FLOMAX [Concomitant]
     Active Substance: TAMSULOSIN HYDROCHLORIDE
  32. CIPROFLOXACIN. [Concomitant]
     Active Substance: CIPROFLOXACIN
  33. NAROPIN [Concomitant]
     Active Substance: ROPIVACAINE HYDROCHLORIDE
  34. AZELASTINE. [Concomitant]
     Active Substance: AZELASTINE HYDROCHLORIDE
  35. NEVIRAPINE. [Concomitant]
     Active Substance: NEVIRAPINE
  36. TRAMADOL. [Concomitant]
     Active Substance: TRAMADOL
  37. SENSORCAINE [BUPIVACAINE HYDROCHLORIDE] [Concomitant]
  38. PENICILLIN [PENICILLIN NOS] [Concomitant]
     Active Substance: PENICILLIN
  39. TETRACYCLINE [Concomitant]
     Active Substance: TETRACYCLINE
  40. VIREAD [Suspect]
     Active Substance: TENOFOVIR DISOPROXIL FUMARATE
     Indication: HIV INFECTION
     Dosage: UNK
     Route: 048
     Dates: start: 20130102, end: 20160316
  41. ANCEF O [Concomitant]
  42. DEXAMETHASONE. [Concomitant]
     Active Substance: DEXAMETHASONE
  43. ESOMEPRAZOLE. [Concomitant]
     Active Substance: ESOMEPRAZOLE MAGNESIUM
  44. CRIXIVAN [Concomitant]
     Active Substance: INDINAVIR SULFATE
  45. HYDROCODONE BITARTRATE AND ACETAMINOPHEN [Concomitant]
     Active Substance: ACETAMINOPHEN\HYDROCODONE BITARTRATE
  46. ASA [Concomitant]
     Active Substance: ASPIRIN
  47. CEPHALEXIN AMEL [Concomitant]
     Active Substance: CEPHALEXIN
  48. NEOSPORIN [NEOMYCIN SULFATE;POLYMYXIN B SULFATE] [Concomitant]
  49. AZITHROMYCIN ANHYDROUS. [Concomitant]
     Active Substance: AZITHROMYCIN ANHYDROUS
  50. FLUTICASONE. [Concomitant]
     Active Substance: FLUTICASONE
  51. VITAMIN D3 [Concomitant]
     Active Substance: CHOLECALCIFEROL
     Dosage: UNK
     Dates: start: 201604
  52. AMPICILLIN [Concomitant]
     Active Substance: AMPICILLIN

REACTIONS (11)
  - Anxiety [Not Recovered/Not Resolved]
  - Economic problem [Unknown]
  - Osteoporosis [Not Recovered/Not Resolved]
  - Emotional distress [Unknown]
  - Wrist fracture [Not Recovered/Not Resolved]
  - Upper limb fracture [Unknown]
  - Anhedonia [Unknown]
  - Pain [Unknown]
  - Osteopenia [Not Recovered/Not Resolved]
  - Bone density decreased [Unknown]
  - Upper limb fracture [Not Recovered/Not Resolved]

NARRATIVE: CASE EVENT DATE: 20140604
